FAERS Safety Report 7581024-2 (Version None)
Quarter: 2011Q2

REPORT INFORMATION
  Report Type: 
  Country: None (occurrence: None)
  Receive Date: 20110629
  Receipt Date: 20110622
  Transmission Date: 20111010
  Serious: Yes (Other)
  Sender: FDA-Public Use
  Company Number: JP-PFIZER INC-2011062214

PATIENT
  Age: 45 Year
  Sex: Male

DRUGS (3)
  1. PEGVISOMANT [Suspect]
     Dosage: 15 MG, 2X/DAY
     Dates: start: 20080904, end: 20091215
  2. PEGVISOMANT [Suspect]
     Indication: ACROMEGALY
     Dosage: 15 MG, 1X/DAY
     Dates: start: 20080508, end: 20080903
  3. PEGVISOMANT [Suspect]
     Dosage: 20 MG, 1X/DAY
     Dates: start: 20091216

REACTIONS (2)
  - NEOPLASM PROGRESSION [None]
  - PITUITARY TUMOUR [None]
